FAERS Safety Report 7015747-0 (Version None)
Quarter: 2010Q3

REPORT INFORMATION
  Report Type: 
  Country: None (occurrence: None)
  Receive Date: 20100927
  Receipt Date: 20100513
  Transmission Date: 20110219
  Serious: No
  Sender: FDA-Public Use
  Company Number: US-ASTRAZENECA-2010SE22069

PATIENT
  Sex: Female

DRUGS (2)
  1. ARIMIDEX [Suspect]
     Indication: BREAST CANCER
     Route: 048
     Dates: start: 20080601
  2. CLODRONATE DISODIUM [Concomitant]
     Indication: PROPHYLAXIS

REACTIONS (2)
  - DISORIENTATION [None]
  - DIZZINESS [None]
